FAERS Safety Report 7600039-9 (Version None)
Quarter: 2011Q2

REPORT INFORMATION
  Report Type: 
  Country: None (occurrence: None)
  Receive Date: 20110620
  Receipt Date: 20110228
  Transmission Date: 20111010
  Serious: Yes (Hospitalization)
  Sender: FDA-Public Use
  Company Number: UTC-005446

PATIENT
  Age: 91 Year
  Sex: Male

DRUGS (1)
  1. TYVASO [Suspect]
     Dosage: 3-9 BREATHS QID (4 IN 1 D), INHALATION
     Route: 055

REACTIONS (1)
  - PNEUMONIA [None]
